FAERS Safety Report 5684981-4 (Version None)
Quarter: 2008Q1

REPORT INFORMATION
  Report Type: 
  Country: None (occurrence: None)
  Receive Date: 20080328
  Receipt Date: 20080318
  Transmission Date: 20080703
  Serious: Yes (Hospitalization, Disabling)
  Sender: FDA-Public Use
  Company Number: AR-ROCHE-523021

PATIENT
  Age: 16 Year
  Sex: Female
  Weight: 58 kg

DRUGS (31)
  1. MYCOPHENOLATE MOFETIL [Suspect]
     Indication: LUPUS NEPHRITIS
     Route: 048
     Dates: start: 20060822, end: 20070204
  2. MYCOPHENOLATE MOFETIL [Suspect]
     Indication: LUPUS NEPHRITIS
     Dosage: LAST DOSE RECEIVED ON 16 APRIL 2007.
     Route: 048
     Dates: start: 20070205
  3. MYCOPHENOLATE MOFETIL [Suspect]
     Dosage: THERAPY PERMANENTLY DISCONTINUED.
     Route: 048
     Dates: start: 20070417, end: 20071002
  4. AZATHIOPRINE [Suspect]
     Indication: LUPUS NEPHRITIS
     Dosage: LAST DOSE RECEIVED ON 16 APRIL 2007.
     Route: 048
     Dates: start: 20070205
  5. AZATHIOPRINE [Suspect]
     Dosage: THERAPY PERMANENTLY DISCONTINUED.
     Route: 048
     Dates: start: 20070417, end: 20071002
  6. METHYLPREDNISOLONE [Suspect]
     Indication: LUPUS NEPHRITIS
     Dosage: REPORTED AS METHYLPREDNISONE.
     Route: 048
     Dates: start: 20061114, end: 20071002
  7. METHYLPREDNISOLONE [Suspect]
     Route: 048
     Dates: start: 20071003, end: 20071007
  8. METHYLPREDNISOLONE [Suspect]
     Route: 048
     Dates: start: 20071008, end: 20080117
  9. CYCLOPHOSPHAMIDE [Suspect]
     Indication: LUPUS NEPHRITIS
     Route: 042
     Dates: start: 20071008, end: 20071008
  10. CYCLOPHOSPHAMIDE [Suspect]
     Route: 042
     Dates: start: 20071221, end: 20071221
  11. CYCLOPHOSPHAMIDE [Suspect]
     Route: 042
     Dates: start: 20080121, end: 20080121
  12. FUROSEMIDE [Concomitant]
     Dosage: INDICATION: EOEHA
     Dates: start: 20060808, end: 20060808
  13. FUROSEMIDE [Concomitant]
     Dates: start: 20070604, end: 20071001
  14. FUROSEMIDE [Concomitant]
     Dates: start: 20071002, end: 20071002
  15. FUROSEMIDE [Concomitant]
     Dates: start: 20071003, end: 20071003
  16. FUROSEMIDE [Concomitant]
     Dates: start: 20071005
  17. LOSARTAN POTASSIUM [Concomitant]
     Dates: start: 20060808, end: 20071003
  18. LOSARTAN POTASSIUM [Concomitant]
     Dates: start: 20071004, end: 20071023
  19. OMEPRAZOLE [Concomitant]
     Route: 042
     Dates: start: 20070411
  20. OMEPRAZOLE [Concomitant]
     Route: 042
     Dates: start: 20071002, end: 20071008
  21. OMEPRAZOLE [Concomitant]
     Route: 048
     Dates: start: 20071009
  22. YECTAFER [Concomitant]
     Dosage: REPORTED AS YECTAFER COMPLEX - FOLIC ACID
     Dates: start: 20070925, end: 20070930
  23. YECTAFER [Concomitant]
     Dosage: REPORTED AS YECTAFER COMPLEX - FERRUM
     Dates: start: 20070925, end: 20070930
  24. YECTAFER [Concomitant]
     Dosage: REPORTED AS YECTAFER COMPLEX - VITAMIN B12
     Dates: start: 20070925, end: 20070930
  25. FOLIC ACID [Concomitant]
     Dates: start: 20070925, end: 20070930
  26. FERRUM [Concomitant]
     Dates: start: 20070925, end: 20070930
  27. VITAMIN B-12 [Concomitant]
     Dates: start: 20070925, end: 20070930
  28. 1 CONCOMITANT DRUG [Concomitant]
     Dosage: DRUG REPORTED AS CALCIUM BICARBONATE
     Dates: start: 20070622, end: 20071001
  29. SUCRALFATE [Concomitant]
     Dates: start: 20070305, end: 20071001
  30. NYSTATIN [Concomitant]
     Dosage: TOTAL DAILY DOSE REPORTED AS 300000 UI.
     Dates: start: 20071005, end: 20071007
  31. EPOGEN [Concomitant]
     Dates: start: 20071003

REACTIONS (6)
  - HAEMATOCRIT DECREASED [None]
  - HAEMOGLOBIN DECREASED [None]
  - INFECTION [None]
  - LUPUS NEPHRITIS [None]
  - RENAL FAILURE [None]
  - SYSTEMIC LUPUS ERYTHEMATOSUS [None]
